FAERS Safety Report 6610112-X (Version None)
Quarter: 2010Q1

REPORT INFORMATION
  Report Type: 
  Country: None (occurrence: None)
  Receive Date: 20100302
  Receipt Date: 20100219
  Transmission Date: 20100710
  Serious: Yes (Other)
  Sender: FDA-Public Use
  Company Number: US-PFIZER INC-2010023040

PATIENT
  Sex: Female
  Weight: 92 kg

DRUGS (7)
  1. TIKOSYN [Suspect]
     Indication: ATRIAL FIBRILLATION
     Dosage: 0.25 MG, 1X/DAY
     Route: 048
  2. METOPROLOL [Concomitant]
     Dosage: UNK
  3. EFFEXOR [Concomitant]
  4. CALCIUM [Concomitant]
     Dosage: UNK
  5. LASIX [Concomitant]
     Dosage: UNK
  6. XANAX [Concomitant]
     Dosage: UNK
  7. TRAZODONE [Concomitant]
     Dosage: UNK

REACTIONS (4)
  - BIPOLAR DISORDER [None]
  - CARDIAC PACEMAKER INSERTION [None]
  - MANIA [None]
  - VASCULAR DEMENTIA [None]
